FAERS Safety Report 9536805 (Version 2)
Quarter: 2013Q4

REPORT INFORMATION
  Report Type: Report from Study
  Country: US (occurrence: US)
  Receive Date: 20130919
  Receipt Date: 20131007
  Transmission Date: 20140711
  Serious: Yes (Hospitalization)
  Sender: FDA-Public Use
  Company Number: US-AMGEN-USACT2013064618

PATIENT
  Age: 83 Year
  Sex: Female

DRUGS (23)
  1. DENOSUMAB [Suspect]
     Indication: OSTEOPOROSIS POSTMENOPAUSAL
     Dosage: 60 MG, Q6MO
     Route: 058
     Dates: start: 20080410
  2. COUMADIN                           /00014802/ [Concomitant]
     Indication: PROPHYLAXIS
     Dosage: 20 MG, QD
     Route: 048
     Dates: start: 20090519, end: 20120520
  3. VITAMIN K                          /00032401/ [Concomitant]
  4. HYDROCHLORTHIAZID [Concomitant]
     Indication: HYPERTENSION
     Dosage: 50 MG, QD
     Route: 048
     Dates: start: 2002, end: 20130904
  5. PRILOSEC                           /00661201/ [Concomitant]
     Indication: DYSPEPSIA
     Dosage: 20 MG, QD
     Route: 048
     Dates: start: 200709
  6. VITAMIN B COMPLEX [Concomitant]
     Indication: PROPHYLAXIS
     Dosage: 75 MUG, BID
     Route: 048
     Dates: start: 2004
  7. CALCIUM [Concomitant]
     Dosage: 500 MG, BID
     Route: 048
     Dates: start: 20050405
  8. VITAMIN D                          /00107901/ [Concomitant]
     Dosage: 400 IU, BID
     Route: 048
     Dates: start: 20050405
  9. NEXIUM                             /01479302/ [Concomitant]
     Indication: ULCER
     Dosage: 40 MG, AS NECESSARY
     Route: 048
     Dates: start: 20050502
  10. DIABETA                            /00145301/ [Concomitant]
     Indication: DIABETES MELLITUS
     Dosage: 5 MG, BID
     Route: 048
     Dates: start: 20100801, end: 20120724
  11. PRIMADOPHILUS BIFIDUS [Concomitant]
     Dosage: 1 DF, QHS
     Route: 048
     Dates: start: 2010
  12. SIMVASTATIN [Concomitant]
     Indication: HYPERCHOLESTEROLAEMIA
     Dosage: 40 MG, QD
     Route: 048
     Dates: start: 20090516
  13. MVI                                /01825701/ [Concomitant]
     Dosage: 1 DF, QD
     Route: 048
     Dates: start: 20081101, end: 2010
  14. METOPROLOL TARTRATE [Concomitant]
     Indication: HYPERTENSION
     Dosage: 25 MG, BID
     Route: 048
     Dates: start: 20090516
  15. ENOXAPARIN [Concomitant]
     Indication: PROPHYLAXIS
     Dosage: 70 MG, Q12H
     Route: 065
     Dates: start: 20120520, end: 20120526
  16. GLYBURIDE [Concomitant]
     Indication: DIABETES MELLITUS
     Dosage: 10 MG, BID
     Route: 048
     Dates: start: 20120725
  17. CEFALEXIN [Concomitant]
     Indication: URINARY TRACT INFECTION
     Dosage: 500 MG, QID
     Route: 048
     Dates: start: 20130131, end: 20130209
  18. GUAIFENESIN [Concomitant]
     Indication: BRONCHITIS
     Dosage: 100 MG, AS NECESSARY
     Route: 048
     Dates: start: 20130404, end: 20130406
  19. DEXTROMETHORPHAN [Concomitant]
     Indication: BRONCHITIS
     Dosage: 10 MG, AS NECESSARY
     Route: 048
     Dates: start: 20130404, end: 20130406
  20. ALBUTEROL                          /00139501/ [Concomitant]
     Indication: BRONCHITIS
     Dosage: 108 MG, Q4H
     Dates: start: 20130404, end: 20130406
  21. PREDNISOLONE [Concomitant]
     Indication: BRONCHITIS
     Dosage: 40 MG, QD
     Route: 048
     Dates: start: 20130404, end: 20130406
  22. AZITHROMYCIN [Concomitant]
     Indication: BRONCHITIS
     Dosage: 500 MG, QD
     Route: 048
     Dates: start: 20130404, end: 20130406
  23. SUPER B 50 COMPLEX [Concomitant]
     Dosage: UNK UNK, QD
     Route: 048
     Dates: start: 20130725

REACTIONS (1)
  - Contusion [Recovered/Resolved]
